FAERS Safety Report 12732206 (Version 5)
Quarter: 2017Q4

REPORT INFORMATION
  Report Type: Report from Study
  Country: PT (occurrence: PT)
  Receive Date: 20160912
  Receipt Date: 20171006
  Transmission Date: 20180320
  Serious: Yes (Other)
  Sender: FDA-Public Use
  Company Number: PHHY2016PT097717

PATIENT
  Age: 57 Year
  Sex: Female

DRUGS (14)
  1. SEVREDOL [Concomitant]
     Active Substance: MORPHINE
     Indication: PRODUCT USED FOR UNKNOWN INDICATION
     Dosage: 20 MG, QD
     Route: 065
  2. XANAX [Concomitant]
     Active Substance: ALPRAZOLAM
     Dosage: 1 MG, UNK
     Route: 065
  3. JURNISTA [Concomitant]
     Active Substance: HYDROMORPHONE HYDROCHLORIDE
     Indication: PRODUCT USED FOR UNKNOWN INDICATION
     Dosage: 32 MG, UNK
     Route: 065
  4. VITAMIN A [Concomitant]
     Active Substance: VITAMIN A
     Indication: PRODUCT USED FOR UNKNOWN INDICATION
     Dosage: UNK
     Route: 065
  5. GILENYA [Suspect]
     Active Substance: FINGOLIMOD HYDROCHLORIDE
     Indication: MULTIPLE SCLEROSIS
     Dosage: 0.5 MG, QD
     Route: 048
     Dates: start: 20130206, end: 20161014
  6. FENTANIL [Concomitant]
     Active Substance: FENTANYL
     Indication: PRODUCT USED FOR UNKNOWN INDICATION
     Dosage: 75 UG, UNK
     Route: 065
  7. TOLVON [Concomitant]
     Active Substance: MIANSERIN
     Indication: PRODUCT USED FOR UNKNOWN INDICATION
     Dosage: 30 MG, UNK
     Route: 065
  8. ORAMORPH [Concomitant]
     Active Substance: MORPHINE SULFATE
     Indication: PRODUCT USED FOR UNKNOWN INDICATION
     Dosage: 20 MG, UNK
     Route: 065
  9. MORPHINE [Concomitant]
     Active Substance: MORPHINE
     Indication: PRODUCT USED FOR UNKNOWN INDICATION
     Route: 065
  10. XANAX [Concomitant]
     Active Substance: ALPRAZOLAM
     Indication: PRODUCT USED FOR UNKNOWN INDICATION
     Dosage: UNK
     Route: 065
  11. GILENYA [Suspect]
     Active Substance: FINGOLIMOD HYDROCHLORIDE
     Dosage: 0.5 MG, QD
     Route: 048
     Dates: start: 20170905
  12. METAMIZOLE MAGNESIUM [Concomitant]
     Active Substance: METAMIZOLE MAGNESIUM
     Indication: PRODUCT USED FOR UNKNOWN INDICATION
     Dosage: UNK
     Route: 065
  13. MORPHINE [Concomitant]
     Active Substance: MORPHINE
     Indication: PRODUCT USED FOR UNKNOWN INDICATION
     Route: 065
  14. VENLAFAXIN [Concomitant]
     Active Substance: VENLAFAXINE HYDROCHLORIDE
     Indication: PRODUCT USED FOR UNKNOWN INDICATION
     Dosage: 190 MG, UNK
     Route: 065

REACTIONS (24)
  - Nail injury [Recovering/Resolving]
  - Erythema [Recovered/Resolved]
  - Wound [Recovering/Resolving]
  - Inflammation [Unknown]
  - Stress [Unknown]
  - Hip fracture [Unknown]
  - Asthenia [Not Recovered/Not Resolved]
  - Fall [Unknown]
  - Amnesia [Unknown]
  - Concomitant disease aggravated [Not Recovered/Not Resolved]
  - Intraductal papillary breast neoplasm [Unknown]
  - Pain in extremity [Not Recovered/Not Resolved]
  - Depression [Unknown]
  - Multiple sclerosis relapse [Not Recovered/Not Resolved]
  - Pain [Unknown]
  - Malaise [Unknown]
  - Emotional disorder [Unknown]
  - Weight increased [Unknown]
  - Localised infection [Recovered/Resolved]
  - Breast mass [Not Recovered/Not Resolved]
  - Hypoaesthesia [Not Recovered/Not Resolved]
  - Fatigue [Unknown]
  - Mental disorder [Unknown]
  - Muscular weakness [Unknown]

NARRATIVE: CASE EVENT DATE: 201505
